FAERS Safety Report 8013146-6 (Version None)
Quarter: 2011Q4

REPORT INFORMATION
  Report Type: 
  Country: None (occurrence: None)
  Receive Date: 20111229
  Receipt Date: 20111227
  Transmission Date: 20120403
  Serious: Yes (Hospitalization)
  Sender: FDA-Public Use
  Company Number: US-PFIZER INC-2011314432

PATIENT
  Sex: Male
  Weight: 117.1 kg

DRUGS (11)
  1. LYRICA [Suspect]
     Dosage: 450 MG, 1X/DAY
     Route: 048
     Dates: start: 20110101, end: 20111201
  2. LYRICA [Suspect]
     Indication: NEURALGIA
     Dosage: 75 MG, 1X/DAY
     Route: 048
     Dates: start: 20090101, end: 20110101
  3. FLECAINIDE [Concomitant]
     Dosage: 100 MG, UNK
  4. FUROSEMIDE [Concomitant]
     Dosage: 30 MG, UNK
  5. LISINOPRIL [Concomitant]
     Dosage: 20 MG, UNK
  6. POTASSIUM [Concomitant]
     Dosage: 10 MG, UNK
  7. LYRICA [Suspect]
     Dosage: 150 MG, 1X/DAY
     Route: 048
     Dates: start: 20110101, end: 20110101
  8. AMITRIPTYLINE HCL [Suspect]
     Indication: NEURALGIA
     Dosage: 25 MG, 1X/DAY
     Route: 048
     Dates: start: 20111001
  9. METOPROLOL [Concomitant]
     Dosage: 100 MG, UNK
  10. CYMBALTA [Suspect]
     Indication: NEURALGIA
     Dosage: 60 MG, 1X/DAY
     Route: 048
     Dates: start: 20111001
  11. WARFARIN [Concomitant]
     Dosage: 7.5 MG, UNK

REACTIONS (11)
  - OEDEMA PERIPHERAL [None]
  - HEART RATE INCREASED [None]
  - NAUSEA [None]
  - DISCOMFORT [None]
  - PAIN [None]
  - SOMNOLENCE [None]
  - PALPITATIONS [None]
  - ATRIAL FIBRILLATION [None]
  - DRUG INEFFECTIVE [None]
  - ASTHENIA [None]
  - FATIGUE [None]
